FAERS Safety Report 25524831 (Version 1)
Quarter: 2025Q3

REPORT INFORMATION
  Report Type: Spontaneous
  Country: US (occurrence: US)
  Receive Date: 20250707
  Receipt Date: 20250707
  Transmission Date: 20251021
  Serious: Yes (Hospitalization, Other)
  Sender: AMGEN
  Company Number: US-AMGEN-USASP2025129138

PATIENT
  Age: 17 Year
  Sex: Female

DRUGS (5)
  1. IVABRADINE [Suspect]
     Active Substance: IVABRADINE
     Indication: Postural orthostatic tachycardia syndrome
     Route: 065
  2. IVABRADINE [Suspect]
     Active Substance: IVABRADINE
     Indication: Off label use
  3. SOTALOL [Suspect]
     Active Substance: SOTALOL
     Indication: Heart rate abnormal
     Dosage: 80 MILLIGRAM, BID
     Route: 065
  4. METOPROLOL [Concomitant]
     Active Substance: METOPROLOL
     Indication: Postural orthostatic tachycardia syndrome
     Route: 065
  5. MIDODRINE [Concomitant]
     Active Substance: MIDODRINE
     Indication: Postural orthostatic tachycardia syndrome
     Route: 065

REACTIONS (16)
  - Hypermobility syndrome [Unknown]
  - Cardiac murmur [Unknown]
  - Sinus tachycardia [Recovering/Resolving]
  - Heart rate increased [Unknown]
  - Blood pressure increased [Unknown]
  - Syncope [Unknown]
  - Drug ineffective for unapproved indication [Unknown]
  - Postural orthostatic tachycardia syndrome [Unknown]
  - Condition aggravated [Unknown]
  - Epstein-Barr virus infection [Unknown]
  - Urinary incontinence [Unknown]
  - Dizziness [Unknown]
  - Palpitations [Unknown]
  - Arthralgia [Unknown]
  - Fatigue [Unknown]
  - Off label use [Unknown]
